FAERS Safety Report 8897644 (Version 2)
Quarter: 2013Q2

REPORT INFORMATION
  Report Type: Spontaneous
  Country: US (occurrence: US)
  Receive Date: 20121108
  Receipt Date: 20130506
  Transmission Date: 20140414
  Serious: No
  Sender: FDA-Public Use
  Company Number: US-AMGEN-USASP2012025112

PATIENT
  Age: 68 Year
  Sex: Female

DRUGS (11)
  1. ENBREL [Suspect]
     Indication: RHEUMATOID ARTHRITIS
     Dosage: 50 MG, QWK
     Route: 058
     Dates: start: 20070815, end: 20111010
  2. METHOTREXATE [Concomitant]
     Dosage: 2.5 MG, UNK
  3. PLAQUENIL                          /00072603/ [Concomitant]
     Dosage: 200 MG, UNK
  4. LIPITOR [Concomitant]
     Dosage: 10 MG, UNK
  5. ACIPHEX [Concomitant]
     Dosage: 20 MG, UNK
  6. DICYCLOMINE                        /00068601/ [Concomitant]
     Dosage: 20 MG, UNK
  7. FISH OIL [Concomitant]
     Dosage: UNK
  8. VITAMIN D /00107901/ [Concomitant]
     Dosage: 400 UNK
  9. CALCIUM 600 PLUS VITAMIN D [Concomitant]
     Dosage: UNK
  10. PROBIOTIC [Concomitant]
     Dosage: UNK
  11. NAPROXEN [Concomitant]
     Dosage: 250 MG, UNK

REACTIONS (3)
  - Fall [Recovered/Resolved]
  - Tooth loss [Recovered/Resolved]
  - Tooth fracture [Recovered/Resolved]
